FAERS Safety Report 25274608 (Version 1)
Quarter: 2025Q2

REPORT INFORMATION
  Report Type: Spontaneous
  Country: US (occurrence: US)
  Receive Date: 20250506
  Receipt Date: 20250506
  Transmission Date: 20250716
  Serious: Yes (Other)
  Sender: UCB
  Company Number: US-UCBSA-2025025244

PATIENT
  Age: 2 Month
  Sex: Female

DRUGS (2)
  1. LEVETIRACETAM [Suspect]
     Active Substance: LEVETIRACETAM
     Indication: Seizure
  2. PREDNISOLONE [Concomitant]
     Active Substance: PREDNISOLONE
     Indication: Seizure

REACTIONS (1)
  - Seizure [Recovered/Resolved]
